FAERS Safety Report 5034159-2 (Version None)
Quarter: 2006Q2

REPORT INFORMATION
  Report Type: 
  Country: None (occurrence: None)
  Receive Date: 20060626
  Receipt Date: 20060524
  Transmission Date: 20061013
  Serious: Yes (Other)
  Sender: FDA-Public Use
  Company Number: GB-GLAXOSMITHKLINE-B0425959A

PATIENT
  Age: 42 Year
  Sex: Female

DRUGS (15)
  1. PIRITON SYRUP [Suspect]
     Dosage: 10ML TWICE PER DAY
     Route: 048
     Dates: start: 20060515, end: 20060520
  2. GAVISCON [Concomitant]
     Route: 048
  3. SALINE STERIPOULES [Concomitant]
     Dosage: 1AMP THREE TIMES PER DAY
  4. SALBUTAMOL INHALER [Concomitant]
     Dosage: 2PUFF AS REQUIRED
     Route: 055
  5. PARACETAMOL [Concomitant]
     Dosage: 2TAB FOUR TIMES PER DAY
     Route: 048
  6. ASMANEX [Concomitant]
     Route: 048
  7. OXYGEN [Concomitant]
  8. CEFIXIME CHEWABLE [Concomitant]
     Dosage: 1TAB TWICE PER DAY
     Route: 048
  9. ALENDRONIC ACID [Concomitant]
     Dosage: 70MG WEEKLY
     Route: 048
  10. RANITIDINE [Concomitant]
     Dosage: 1TAB TWICE PER DAY
     Route: 048
  11. BETNESOL N [Concomitant]
  12. EPIPEN [Concomitant]
  13. CINNARIZINE [Concomitant]
     Dosage: 2TAB THREE TIMES PER DAY
     Route: 048
  14. FORMOTEROL POWDER [Concomitant]
     Dosage: 2PUFF THREE TIMES PER DAY
     Route: 055
  15. BENDROFLUAZIDE [Concomitant]
     Dosage: 1TAB PER DAY
     Route: 048

REACTIONS (5)
  - ASTHMA [None]
  - DYSPNOEA [None]
  - PHARYNGEAL OEDEMA [None]
  - SENSATION OF FOREIGN BODY [None]
  - THROAT TIGHTNESS [None]
